FAERS Safety Report 6602966-8 (Version None)
Quarter: 2010Q1

REPORT INFORMATION
  Report Type: 
  Country: None (occurrence: None)
  Receive Date: 20100218
  Receipt Date: 20100203
  Transmission Date: 20100710
  Serious: Yes (Hospitalization)
  Sender: FDA-Public Use
  Company Number: 060005L10JPN

PATIENT
  Age: 29 Year
  Sex: Female

DRUGS (4)
  1. CLOMIPHENE CITRATE [Suspect]
     Indication: OVULATION INDUCTION
  2. CHORIONIC GONADOTROPIN [Suspect]
     Indication: OVULATION INDUCTION
  3. UNKEITO (CHINESE HERBAL REMEDY) (HERBAL PREPARATION) [Concomitant]
  4. METFORMIN HCL [Concomitant]

REACTIONS (11)
  - ABORTION THREATENED [None]
  - ANAEMIA [None]
  - APPENDICITIS [None]
  - GENITAL HAEMORRHAGE [None]
  - HETEROTOPIC PREGNANCY [None]
  - LYMPHADENOPATHY [None]
  - OVARIAN CYST RUPTURED [None]
  - OVARIAN CYST TORSION [None]
  - OVARIAN HYPERSTIMULATION SYNDROME [None]
  - PERITONITIS [None]
  - VOMITING [None]
